FAERS Safety Report 10447389 (Version 2)
Quarter: 2014Q3

REPORT INFORMATION
  Report Type: Spontaneous
  Country: US (occurrence: US)
  Receive Date: 20140911
  Receipt Date: 20140911
  Transmission Date: 20150326
  Serious: No
  Sender: FDA-Public Use
  Company Number: US-BEH-2011030618

PATIENT
  Age: 47 Year
  Sex: Female
  Weight: 76 kg

DRUGS (37)
  1. ZEMAIRA [Suspect]
     Active Substance: .ALPHA.1-PROTEINASE INHIBITOR HUMAN
     Dosage: MAXIMUM RATE = 0.08 ML PER KG PER MIN (5.9 ML PER MIN)
     Route: 058
     Dates: start: 20120110, end: 20120110
  2. ZEMAIRA [Suspect]
     Active Substance: .ALPHA.1-PROTEINASE INHIBITOR HUMAN
     Dosage: 964 MG/VIAL
     Route: 042
     Dates: start: 20120306, end: 20120306
  3. ZEMAIRA [Suspect]
     Active Substance: .ALPHA.1-PROTEINASE INHIBITOR HUMAN
     Dosage: 974 MG/VIAL; 0.08 PER KG PER MIN (6.1 ML PER MIN)
     Route: 042
     Dates: start: 20140128, end: 20140128
  4. ZEMAIRA [Suspect]
     Active Substance: .ALPHA.1-PROTEINASE INHIBITOR HUMAN
     Dosage: 974 MG/VIAL;
     Route: 042
  5. COD LIVER OIL [Concomitant]
     Active Substance: COD LIVER OIL
  6. LYSINE [Concomitant]
     Active Substance: LYSINE
  7. VITAMIN D3 [Concomitant]
     Active Substance: CHOLECALCIFEROL
  8. ZEMAIRA [Suspect]
     Active Substance: .ALPHA.1-PROTEINASE INHIBITOR HUMAN
     Indication: ALPHA-1 ANTI-TRYPSIN DEFICIENCY
     Dosage: MAX RATE = 0.08 ML PR KG PER MIN (5.9 ML PER MIN)
     Route: 058
     Dates: start: 20120104, end: 20120104
  9. VENTOLIN HFA [Concomitant]
     Active Substance: ALBUTEROL SULFATE
  10. OMEGA 3-6-9 [Concomitant]
  11. DIPHENHYDRAMINE [Concomitant]
     Active Substance: DIPHENHYDRAMINE
  12. LMX [Concomitant]
     Active Substance: LIDOCAINE
  13. VITAMIN B COMPLEX [Concomitant]
     Active Substance: CYANOCOBALAMIN\DEXPANTHENOL\NIACINAMIDE\PYRIDOXINE HYDROCHLORIDE\RIBOFLAVIN 5^-PHOSPHATE SODIUM\THIAMINE HYDROCHLORIDE\VITAMIN B COMPLEX
  14. ZEMAIRA [Suspect]
     Active Substance: .ALPHA.1-PROTEINASE INHIBITOR HUMAN
     Dosage: 994 MG/VIAL
     Route: 042
  15. IMITREX [Concomitant]
     Active Substance: SUMATRIPTAN\SUMATRIPTAN SUCCINATE
  16. HEPARIN [Concomitant]
     Active Substance: HEPARIN SODIUM
  17. ZEMAIRA [Suspect]
     Active Substance: .ALPHA.1-PROTEINASE INHIBITOR HUMAN
     Dosage: MAX RATE OF 6 ML PER MIN
     Route: 042
     Dates: start: 20111213, end: 20111213
  18. DILTIAZEM [Concomitant]
     Active Substance: DILTIAZEM
  19. NAPROXEN. [Concomitant]
     Active Substance: NAPROXEN
  20. VITAMIN C [Concomitant]
     Active Substance: ASCORBIC ACID
  21. CALCIUM CITRATE WITH VITAMIN D [Concomitant]
     Active Substance: CALCIUM CITRATE\VITAMIN D
  22. EPIPEN [Concomitant]
     Active Substance: EPINEPHRINE
  23. ZOLOFT [Concomitant]
     Active Substance: SERTRALINE HYDROCHLORIDE
  24. TUMS [Concomitant]
     Active Substance: CALCIUM CARBONATE
  25. SPIRIVA [Concomitant]
     Active Substance: TIOTROPIUM BROMIDE MONOHYDRATE
  26. ESTER C [Concomitant]
  27. ZEMAIRA [Suspect]
     Active Substance: .ALPHA.1-PROTEINASE INHIBITOR HUMAN
     Dosage: 903 MG/VL 0.08 ML PER KG PERMIN (6 ML PER MIN)
     Route: 042
     Dates: start: 20120124, end: 20120124
  28. MULTIVITAMIN [Concomitant]
     Active Substance: VITAMINS
  29. SODIUM CHLORIDE. [Concomitant]
     Active Substance: SODIUM CHLORIDE
  30. ZEMAIRA [Suspect]
     Active Substance: .ALPHA.1-PROTEINASE INHIBITOR HUMAN
     Dates: start: 20110705
  31. ZEMAIRA [Suspect]
     Active Substance: .ALPHA.1-PROTEINASE INHIBITOR HUMAN
     Dosage: 903 MG/VL; 0.08 ML/KG PER M IN (6 ML PER MIN)
     Route: 042
  32. ZEMAIRA [Suspect]
     Active Substance: .ALPHA.1-PROTEINASE INHIBITOR HUMAN
     Dosage: 942 MG/VIAL; 0.08 PER KG PER MIN(5.9 ML PER MIN)
     Route: 042
     Dates: start: 20140114, end: 20140114
  33. HYDROCHLOROTHIAZIDE. [Concomitant]
     Active Substance: HYDROCHLOROTHIAZIDE
  34. PROBIOTIC [Concomitant]
     Active Substance: PROBIOTICS NOS
  35. ALL OTHER THERAPEUTIC PRODUCTS [Concomitant]
     Active Substance: UNSPECIFIED INGREDIENT
  36. VITAMIN B6 [Concomitant]
     Active Substance: PYRIDOXINE HYDROCHLORIDE
  37. CITALOPRAM [Concomitant]
     Active Substance: CITALOPRAM HYDROBROMIDE

REACTIONS (16)
  - Fatigue [Unknown]
  - Headache [Recovered/Resolved]
  - Headache [Unknown]
  - Fatigue [Recovering/Resolving]
  - Fatigue [Unknown]
  - Headache [Unknown]
  - Migraine [Recovered/Resolved]
  - Headache [Recovered/Resolved]
  - Fatigue [Recovered/Resolved]
  - Headache [Recovered/Resolved]
  - Fatigue [Recovered/Resolved]
  - Headache [Unknown]
  - Fatigue [Recovered/Resolved]
  - Fatigue [Recovered/Resolved]
  - Fatigue [Unknown]
  - Headache [Recovered/Resolved]

NARRATIVE: CASE EVENT DATE: 20111213
